FAERS Safety Report 20979607 (Version 1)
Quarter: 2022Q2

REPORT INFORMATION
  Report Type: Spontaneous
  Country: JP (occurrence: JP)
  Receive Date: 20220620
  Receipt Date: 20220620
  Transmission Date: 20220721
  Serious: Yes (Hospitalization)
  Sender: FDA-Public Use
  Company Number: JP-CHUGAI-2022022816

PATIENT
  Sex: Female

DRUGS (2)
  1. AVASTIN [Suspect]
     Active Substance: BEVACIZUMAB
     Indication: Ovarian cancer
     Route: 041
     Dates: start: 20220531
  2. DOXIL [Concomitant]
     Active Substance: DOXORUBICIN HYDROCHLORIDE
     Indication: Ovarian cancer
     Dosage: UNK
     Route: 041
     Dates: start: 20220531

REACTIONS (2)
  - Abdominal pain [Not Recovered/Not Resolved]
  - Enterocolitis [Not Recovered/Not Resolved]

NARRATIVE: CASE EVENT DATE: 20220604
